FAERS Safety Report 11532607 (Version 2)
Quarter: 2015Q4

REPORT INFORMATION
  Report Type: Spontaneous
  Country: US (occurrence: US)
  Receive Date: 20150921
  Receipt Date: 20151019
  Transmission Date: 20160304
  Serious: Yes (Death, Other)
  Sender: FDA-Public Use
  Company Number: PHEH2015US018298

PATIENT
  Age: 46 Year
  Sex: Female
  Weight: 76.6 kg

DRUGS (3)
  1. METHYLPREDNISOLONE. [Concomitant]
     Active Substance: METHYLPREDNISOLONE
     Indication: PRODUCT USED FOR UNKNOWN INDICATION
     Route: 042
  2. GILENYA [Suspect]
     Active Substance: FINGOLIMOD HYDROCHLORIDE
     Indication: MULTIPLE SCLEROSIS
     Dosage: UNK
     Route: 048
     Dates: start: 20121020, end: 20150521
  3. NATALIZUMAB [Concomitant]
     Active Substance: NATALIZUMAB
     Indication: PRODUCT USED FOR UNKNOWN INDICATION
     Dosage: 2 DOSES
     Route: 065
     Dates: start: 201506, end: 201507

REACTIONS (30)
  - Pulmonary embolism [Not Recovered/Not Resolved]
  - Dysarthria [Unknown]
  - Diplopia [Unknown]
  - Cerebellar syndrome [Unknown]
  - Hypoacusis [Unknown]
  - Specific gravity body fluid increased [Unknown]
  - Nausea [Unknown]
  - Head deformity [Unknown]
  - Eating disorder [Unknown]
  - Band sensation [Unknown]
  - Blood creatinine decreased [Unknown]
  - Blood glucose increased [Unknown]
  - Clumsiness [Unknown]
  - Blood calcium increased [Unknown]
  - Blood potassium decreased [Unknown]
  - Blood chloride decreased [Unknown]
  - Vertigo [Unknown]
  - Dysphagia [Unknown]
  - Cranial nerve disorder [Unknown]
  - White blood cell count increased [Unknown]
  - Respiratory distress [Unknown]
  - CSF protein increased [Unknown]
  - Anion gap increased [Unknown]
  - Multiple sclerosis [Fatal]
  - Limb discomfort [Unknown]
  - Urinary retention [Unknown]
  - Muscular weakness [Unknown]
  - Asthenia [Unknown]
  - Pneumonia aspiration [Fatal]
  - Blood sodium decreased [Unknown]

NARRATIVE: CASE EVENT DATE: 20150303
